FAERS Safety Report 11449764 (Version 1)
Quarter: 2015Q3

REPORT INFORMATION
  Report Type: Spontaneous
  Country: US (occurrence: US)
  Receive Date: 20150903
  Receipt Date: 20150903
  Transmission Date: 20151125
  Serious: No
  Sender: FDA-Public Use
  Company Number: US-ROCHE-1079416

PATIENT
  Sex: Female

DRUGS (4)
  1. RIBAVIRIN. [Suspect]
     Active Substance: RIBAVIRIN
     Indication: CHRONIC HEPATITIS C
     Route: 048
     Dates: start: 20120611
  2. PEGASYS [Suspect]
     Active Substance: PEGINTERFERON ALFA-2A
     Indication: CHRONIC HEPATITIS C
     Route: 058
     Dates: start: 20120611
  3. INCIVEK [Suspect]
     Active Substance: TELAPREVIR
     Indication: CHRONIC HEPATITIS C
     Route: 065
     Dates: start: 20120611
  4. MACRODANTIN [Concomitant]
     Active Substance: NITROFURANTOIN
     Indication: URINARY TRACT INFECTION

REACTIONS (16)
  - Platelet count decreased [Unknown]
  - Dyspnoea [Unknown]
  - Dysgeusia [Unknown]
  - Contusion [Unknown]
  - Influenza like illness [Unknown]
  - Depression [Unknown]
  - Abnormal dreams [Unknown]
  - Abdominal pain upper [Unknown]
  - Fatigue [Unknown]
  - Red blood cell count decreased [Unknown]
  - Decreased appetite [Unknown]
  - Nausea [Unknown]
  - Anxiety [Unknown]
  - Haemorrhoids [Unknown]
  - White blood cell count decreased [Unknown]
  - Headache [Unknown]
